FAERS Safety Report 7272847-8 (Version None)
Quarter: 2011Q1

REPORT INFORMATION
  Report Type: 
  Country: None (occurrence: None)
  Receive Date: 20110203
  Receipt Date: 20110202
  Transmission Date: 20110831
  Serious: Yes (Other)
  Sender: FDA-Public Use
  Company Number: IT-PFIZER INC-2011024180

PATIENT
  Sex: Male

DRUGS (1)
  1. PANTOLOC [Suspect]
     Indication: DYSPEPSIA
     Dosage: 20 MG, DAILY
     Route: 048

REACTIONS (2)
  - VISUAL FIELD DEFECT [None]
  - ABNORMAL SENSATION IN EYE [None]
